FAERS Safety Report 8047183-2 (Version None)
Quarter: 2012Q1

REPORT INFORMATION
  Report Type: 
  Country: None (occurrence: None)
  Receive Date: 20120116
  Receipt Date: 20120110
  Transmission Date: 20120608
  Serious: Yes (Other)
  Sender: FDA-Public Use
  Company Number: PHHO2011NL05274

PATIENT
  Sex: Female
  Weight: 89.4 kg

DRUGS (9)
  1. CYCLOPHOSPHAMIDE [Suspect]
     Indication: BREAST CANCER
     Dosage: UNK
     Route: 042
     Dates: start: 20101216
  2. NO TREATMENT RECEIVED [Suspect]
     Indication: BREAST CANCER
     Dosage: NO TREATMENT
  3. EPIRUBICIN [Suspect]
     Dosage: 200 MG, UNK
     Route: 042
     Dates: start: 20110316
  4. FLURACEDYL [Suspect]
     Dosage: 1000 MG, UNK
     Route: 042
     Dates: start: 20101216
  5. FLURACEDYL [Suspect]
     Dosage: 1000 MG, UNK
     Route: 042
     Dates: start: 20110316
  6. SIMVASTATIN [Concomitant]
     Indication: HYPERCHOLESTEROLAEMIA
     Dosage: 12.5 MG, UNK
  7. EPIRUBICIN [Suspect]
     Dosage: 200 MG, UNK
     Route: 042
     Dates: start: 20101216
  8. CYCLOPHOSPHAMIDE [Suspect]
     Dosage: UNK
     Route: 042
     Dates: start: 20110316
  9. HYDROCHLOROTHIAZIDE [Concomitant]
     Indication: HYPERTENSION
     Dosage: 40 MG, UNK

REACTIONS (1)
  - DEEP VEIN THROMBOSIS [None]
